FAERS Safety Report 20499478 (Version 1)
Quarter: 2022Q1

REPORT INFORMATION
  Report Type: Spontaneous
  Country: US (occurrence: US)
  Receive Date: 20220222
  Receipt Date: 20220222
  Transmission Date: 20220423
  Serious: Yes (Other)
  Sender: FDA-Public Use
  Company Number: US-CELGENE-USA-20220205628

PATIENT
  Age: 83 Year
  Sex: Female

DRUGS (64)
  1. REVLIMID [Suspect]
     Active Substance: LENALIDOMIDE
     Indication: Plasma cell myeloma
     Dosage: 10 MILLIGRAM
     Route: 048
     Dates: start: 20210323
  2. REVLIMID [Suspect]
     Active Substance: LENALIDOMIDE
     Dosage: 10 MILLIGRAM
     Route: 048
     Dates: start: 202201
  3. REVLIMID [Suspect]
     Active Substance: LENALIDOMIDE
     Dosage: 5 MILLIGRAM
     Route: 048
     Dates: start: 202202
  4. ALBUTEROL SULFATE [Concomitant]
     Active Substance: ALBUTEROL SULFATE
     Indication: Wheezing
     Dosage: INHALE 1 PUFF EVERY 6 HRS WHEN NEEDED
     Route: 055
     Dates: start: 20210819
  5. ALLOPURINOL [Concomitant]
     Active Substance: ALLOPURINOL
     Indication: Product used for unknown indication
     Dosage: 1 TABLET DAILY THREE TIMES A DAY FOR 14 DAYS
     Route: 048
     Dates: start: 20210406
  6. AMOXICILLIN [Concomitant]
     Active Substance: AMOXICILLIN
     Indication: Product used for unknown indication
     Dosage: 1000 MILLIGRAM
     Route: 048
     Dates: start: 20210430
  7. AMOXICILLIN [Concomitant]
     Active Substance: AMOXICILLIN
     Dosage: TAKE 4 CAPSULE 1 HOUR PRIOR TO DENTAL TREATMENT
     Route: 048
     Dates: start: 20210321
  8. CEFDINIR [Concomitant]
     Active Substance: CEFDINIR
     Indication: Product used for unknown indication
     Dosage: 300 MILLIGRAM
     Route: 048
     Dates: start: 20210819
  9. CEPHALEXIN [Concomitant]
     Active Substance: CEPHALEXIN
     Indication: Product used for unknown indication
     Dosage: 1 CAPSULE EVERY 8 HOURS FOR 7 DAYS
     Route: 048
     Dates: start: 20210209
  10. CEPHALEXIN [Concomitant]
     Active Substance: CEPHALEXIN
     Dosage: 1 CAPSULE EVERY 8 HOURS FOR 7 DAYS
     Route: 048
     Dates: start: 20210316
  11. CLINDAMYCIN [Concomitant]
     Active Substance: CLINDAMYCIN
     Indication: Product used for unknown indication
     Dosage: 1 PERCENT GEL 30 MG APPLY ON AFFECTED AREA FOR 10 DAYS.
     Route: 061
     Dates: start: 20210513
  12. DEXAMETHASONE [Concomitant]
     Active Substance: DEXAMETHASONE
     Indication: Product used for unknown indication
     Route: 048
     Dates: start: 20210710
  13. DEXAMETHASONE [Concomitant]
     Active Substance: DEXAMETHASONE
     Dosage: .5714 GRAM
     Route: 048
     Dates: start: 20220204
  14. DEXAMETHASONE [Concomitant]
     Active Substance: DEXAMETHASONE
     Dosage: 5 TABLETS EVERY WEEK ON THE DAY OF LENALIDOMIDE
     Route: 048
     Dates: start: 20211127
  15. DULCOLAX NOS [Concomitant]
     Active Substance: BISACODYL OR DOCUSATE SODIUM
     Indication: Constipation
     Dosage: 10 MILLIGRAM
     Route: 054
     Dates: start: 20210819
  16. ENOXAPARIN [Concomitant]
     Active Substance: ENOXAPARIN
     Indication: Product used for unknown indication
     Dosage: 30MG/0.3 ML, O.3 ML  UNDR THE SKIN
     Route: 065
     Dates: start: 20210607
  17. ENOXAPARIN [Concomitant]
     Active Substance: ENOXAPARIN
     Dosage: 30MG/0.3 ML, O.3 ML  UNDR THE SKIN
     Route: 065
     Dates: start: 20210204
  18. ESTRADIOL [Concomitant]
     Active Substance: ESTRADIOL
     Indication: Product used for unknown indication
     Dosage: 0.01 PERCENT 42.5 MG
     Route: 067
     Dates: start: 20211104
  19. FENTANYL [Concomitant]
     Active Substance: FENTANYL
     Indication: Product used for unknown indication
     Dosage: APPLY ONE PATCH EVERY 72 HOURS
     Route: 065
     Dates: start: 20210820
  20. HYDRALAZINE [Concomitant]
     Active Substance: HYDRALAZINE HYDROCHLORIDE
     Indication: Product used for unknown indication
     Dosage: 75 MILLIGRAM
     Route: 048
     Dates: start: 20210819
  21. HYDROMORPHONE HCL [Concomitant]
     Active Substance: HYDROMORPHONE HYDROCHLORIDE
     Indication: Pain
     Dosage: 12 MILLIGRAM
     Route: 048
     Dates: start: 20210819
  22. HYDROMORPHONE HCL [Concomitant]
     Active Substance: HYDROMORPHONE HYDROCHLORIDE
     Dosage: 8 MILLIGRAM
     Route: 048
     Dates: start: 20210427
  23. Ipratromorphone [Concomitant]
     Indication: Product used for unknown indication
     Dosage: 0.5/3 MG INH SL 60*3 ML, ?INHALE 1 VIAL VIA NEBULISER
     Route: 055
     Dates: start: 20210819
  24. isosorbitol mononitrate [Concomitant]
     Indication: Product used for unknown indication
     Dosage: 30 MILLIGRAM
     Route: 048
     Dates: start: 20210819
  25. LEVOFLOXACIN [Concomitant]
     Active Substance: LEVOFLOXACIN
     Indication: Product used for unknown indication
     Dosage: 125 MILLIGRAM
     Route: 048
     Dates: start: 20210406
  26. LEVOFLOXACIN [Concomitant]
     Active Substance: LEVOFLOXACIN
     Dosage: 375 MILLIGRAM
     Route: 048
     Dates: start: 20210428
  27. LIDOCAINE [Concomitant]
     Active Substance: LIDOCAINE
     Indication: Product used for unknown indication
     Dosage: 1 PATCH
     Route: 061
     Dates: start: 20210819
  28. LORATADINE [Concomitant]
     Active Substance: LORATADINE
     Indication: Product used for unknown indication
     Dosage: 10 MILLIGRAM
     Route: 048
     Dates: start: 20210819
  29. MELATONIN [Concomitant]
     Active Substance: MELATONIN
     Indication: Product used for unknown indication
     Dosage: 3 MILLIGRAM
     Route: 048
     Dates: start: 20210819
  30. METHOCARBAMOL [Concomitant]
     Active Substance: METHOCARBAMOL
     Indication: Muscle spasms
     Dosage: 1500 MILLIGRAM
     Route: 048
     Dates: start: 20210819
  31. multivitamin women [Concomitant]
     Indication: Supplementation therapy
     Route: 048
     Dates: start: 20210819
  32. Nitrofuranton macro [Concomitant]
     Indication: Product used for unknown indication
     Dosage: 200 MILLIGRAM
     Route: 048
     Dates: start: 20210820
  33. Nitrofuranton macro [Concomitant]
     Dosage: 200 MILLIGRAM
     Route: 048
     Dates: start: 20210215
  34. ONDANSETRON [Concomitant]
     Active Substance: ONDANSETRON
     Indication: Nausea
     Dosage: 12 MILLIGRAM
     Route: 048
     Dates: start: 20210413
  35. ONDANSETRON [Concomitant]
     Active Substance: ONDANSETRON
     Indication: Vomiting
     Dosage: 16 MILLIGRAM
     Route: 048
     Dates: start: 20210413
  36. ACETAMINOPHEN\OXYCODONE HYDROCHLORIDE [Concomitant]
     Active Substance: ACETAMINOPHEN\OXYCODONE HYDROCHLORIDE
     Indication: Product used for unknown indication
     Dosage: 5-325 MG
     Route: 048
     Dates: start: 20210413
  37. ACETAMINOPHEN [Concomitant]
     Active Substance: ACETAMINOPHEN
     Indication: Product used for unknown indication
     Dosage: 1500 MILLIGRAM
     Route: 048
     Dates: start: 20210819
  38. Polyeth Glycol [Concomitant]
     Indication: Constipation
     Dosage: 3350 NF POWDER 238 MG, DRINK 17 MG ORALLY DAILY AS NEEDED
     Route: 048
     Dates: start: 20210513
  39. Polyeth Glycol [Concomitant]
     Dosage: 3350 NF POWDER 238 MG, DRINK 17 MG ORALLY DAILY AS NEEDED
     Route: 048
     Dates: start: 20210819
  40. POTASSIUM CHLORIDE [Concomitant]
     Active Substance: POTASSIUM CHLORIDE
     Indication: Product used for unknown indication
     Dosage: 20 MILLIEQUIVALENTS
     Route: 048
     Dates: start: 20211217
  41. SENNA [Concomitant]
     Active Substance: SENNA LEAF\SENNOSIDES\SENNOSIDES A AND B
     Indication: Constipation
     Dosage: 8.6 MILLIGRAM
     Route: 048
     Dates: start: 20210426
  42. SENNA [Concomitant]
     Active Substance: SENNA LEAF\SENNOSIDES\SENNOSIDES A AND B
     Route: 048
     Dates: start: 20210611
  43. SF (SODIUM FLUORIDE) [Concomitant]
     Active Substance: SODIUM FLUORIDE
     Indication: Product used for unknown indication
     Dosage: 5000 PLUS 1.1 PERCENT CREAM 51 GRAM, BRUSH TEETH WITH A PEA SISE FOR 2-3 MINUTES  NO FOOD AND DRINK
     Route: 048
     Dates: start: 20210321
  44. SODIUM CHLORIDE [Concomitant]
     Active Substance: SODIUM CHLORIDE
     Indication: Product used for unknown indication
     Dosage: 0.9 PERCENT , 10 ML
     Route: 041
     Dates: start: 20210821
  45. Stool softner [Concomitant]
     Indication: Product used for unknown indication
     Dosage: 2 TABLETS TWICE DAILY
     Route: 048
     Dates: start: 20210819
  46. Sulphameth/trimethoprim [Concomitant]
     Indication: Product used for unknown indication
     Dosage: 800/160 MG
     Route: 048
     Dates: start: 20210323
  47. Sulphameth/trimethoprim [Concomitant]
     Dosage: 800/160 MG
     Route: 048
     Dates: start: 20210330
  48. Sulphameth/trimethoprim [Concomitant]
     Dosage: 800/160 MG
     Route: 048
     Dates: start: 20210518
  49. Sulphameth/trimethoprim [Concomitant]
     Dosage: 800/160 MG FOR 7 DAYS
     Route: 048
     Dates: start: 20220213
  50. VITAMIN D3 [Concomitant]
     Active Substance: CHOLECALCIFEROL
     Indication: Product used for unknown indication
     Dosage: 2 TABLETS DAILY
     Route: 048
     Dates: start: 20210411
  51. VITAMIN D3 [Concomitant]
     Active Substance: CHOLECALCIFEROL
     Dosage: 1 TABLET DAILY
     Route: 048
     Dates: start: 20210819
  52. VITAMIN D3 [Concomitant]
     Active Substance: CHOLECALCIFEROL
     Dosage: 2 TABLETS DAILY
     Route: 048
     Dates: start: 20210611
  53. WAL-TUSSIN [Concomitant]
     Active Substance: DEXTROMETHORPHAN HYDROBROMIDE
     Indication: Product used for unknown indication
     Dosage: 30 MILLILITER
     Route: 048
     Dates: start: 20210819
  54. ATROVENT [Concomitant]
     Active Substance: IPRATROPIUM BROMIDE
     Indication: Product used for unknown indication
     Dosage: 0.03 PERCENT/21 MCG
     Route: 045
  55. CALCIUM [Concomitant]
     Active Substance: CALCIUM
     Indication: Product used for unknown indication
     Route: 065
  56. MINERALS\VITAMINS [Concomitant]
     Active Substance: MINERALS\VITAMINS
     Indication: Product used for unknown indication
     Route: 065
  57. CETIRIZINE HYDROCHLORIDE [Concomitant]
     Active Substance: CETIRIZINE HYDROCHLORIDE
     Indication: Product used for unknown indication
     Route: 065
  58. FOLIC ACID [Concomitant]
     Active Substance: FOLIC ACID
     Indication: Product used for unknown indication
     Route: 065
  59. LIDODERM [Concomitant]
     Active Substance: LIDOCAINE
     Indication: Product used for unknown indication
     Route: 065
  60. MEMANTINE [Concomitant]
     Active Substance: MEMANTINE
     Indication: Product used for unknown indication
     Route: 065
  61. MIRALAX [Concomitant]
     Active Substance: POLYETHYLENE GLYCOL 3350
     Indication: Product used for unknown indication
     Dosage: 3350 NF POWDER 119 GM
     Route: 065
  62. MONTELUKAST [Concomitant]
     Active Substance: MONTELUKAST SODIUM
     Indication: Product used for unknown indication
     Route: 065
  63. TYLENOL [Concomitant]
     Active Substance: ACETAMINOPHEN
     Indication: Product used for unknown indication
     Route: 065
  64. ZOFRAN [Concomitant]
     Active Substance: ONDANSETRON HYDROCHLORIDE
     Indication: Product used for unknown indication
     Route: 065

REACTIONS (1)
  - Urinary tract infection [Unknown]

NARRATIVE: CASE EVENT DATE: 20220214
